FAERS Safety Report 8984191 (Version 1)
Quarter: 2012Q4

REPORT INFORMATION
  Report Type: Spontaneous
  Country: BE (occurrence: None)
  Receive Date: 20121212
  Receipt Date: 20121212
  Transmission Date: 20130627
  Serious: Yes (Hospitalization, Other)
  Sender: FDA-Public Use
  Company Number: 2012/176

PATIENT
  Age: 85 Year
  Sex: Female
  Weight: 61.5 kg

DRUGS (7)
  1. VENLAFAXINE [Suspect]
     Indication: DEPRESSION
  2. MIRTAZAPINE [Suspect]
     Indication: DEPRESSION
  3. BISOPROLOL (NO PREF. NAME) [Concomitant]
  4. LEVOTHYROXINE (NO PREF. NAME) [Concomitant]
  5. SODIUM PICOSULPHATE DROPS (NO PREF. NAME) [Concomitant]
  6. PANTOPRAZOLE (NO PREF. NAME) [Concomitant]
  7. CALCIUM/VITAMIN D3 SUPPLEMENTS [Concomitant]

REACTIONS (14)
  - Metabolic encephalopathy [None]
  - Urinary tract infection [None]
  - General physical health deterioration [None]
  - Loss of consciousness [None]
  - Serotonin syndrome [None]
  - Dyspnoea [None]
  - Eye movement disorder [None]
  - Blood lactic acid increased [None]
  - Blood urea increased [None]
  - Blood creatinine increased [None]
  - Glomerular filtration rate decreased [None]
  - Dehydration [None]
  - Amnesia [None]
  - Bacterial test positive [None]
